FAERS Safety Report 23090446 (Version 2)
Quarter: 2023Q4

REPORT INFORMATION
  Report Type: Spontaneous
  Country: FR (occurrence: FR)
  Receive Date: 20231020
  Receipt Date: 20231108
  Transmission Date: 20240110
  Serious: Yes (Hospitalization)
  Sender: FDA-Public Use
  Company Number: FR-AFSSAPS-AM2023000866

PATIENT
  Age: 71 Year
  Sex: Male
  Weight: 88 kg

DRUGS (10)
  1. AMOXICILLIN\CLAVULANIC ACID [Suspect]
     Active Substance: AMOXICILLIN\CLAVULANIC ACID
     Indication: Tonsillitis
     Dosage: 3 DOSAGE FORM, ONCE A DAY
     Route: 048
     Dates: start: 20230731, end: 20230810
  2. HEXAMIDINE DIISETHIONATE\LIDOCAINE HYDROCHLORIDE [Suspect]
     Active Substance: HEXAMIDINE DIISETHIONATE\LIDOCAINE HYDROCHLORIDE
     Indication: Tonsillitis
     Dosage: 1 DOSAGE FORM, AS NECESSARY (1 SPRAY IN 5 TIMES A DAY)
     Route: 002
     Dates: start: 20230731, end: 20230805
  3. EFFERALGAN [Suspect]
     Active Substance: ACETAMINOPHEN
     Indication: Pain
     Dosage: UNK
     Route: 002
     Dates: start: 20230731, end: 202308
  4. BICLOTYMOL\ENOXOLONE\LYSOZYME [Suspect]
     Active Substance: BICLOTYMOL\ENOXOLONE\LYSOZYME
     Indication: Tonsillitis
     Dosage: 6 DOSAGE FORM, ONCE A DAY
     Route: 002
     Dates: start: 20230731, end: 20230804
  5. METFORMIN PAMOATE [Concomitant]
     Active Substance: METFORMIN PAMOATE
     Indication: Product used for unknown indication
     Dosage: UNK
     Route: 065
  6. CANDESARTAN CILEXETIL [Concomitant]
     Active Substance: CANDESARTAN CILEXETIL
     Indication: Product used for unknown indication
     Dosage: UNK
     Route: 065
  7. CLONIDINE [Concomitant]
     Active Substance: CLONIDINE
     Indication: Product used for unknown indication
     Dosage: UNK
     Route: 065
  8. Loxen [Concomitant]
     Indication: Product used for unknown indication
     Dosage: UNK
     Route: 065
  9. TRELEGY ELLIPTA [Concomitant]
     Active Substance: FLUTICASONE FUROATE\UMECLIDINIUM BROMIDE\VILANTEROL TRIFENATATE
     Indication: Product used for unknown indication
     Dosage: UNK
     Route: 065
  10. HYDROCHLOROTHIAZIDE [Concomitant]
     Active Substance: HYDROCHLOROTHIAZIDE
     Indication: Product used for unknown indication
     Dosage: UNK
     Route: 065

REACTIONS (1)
  - Fixed eruption [Recovered/Resolved with Sequelae]

NARRATIVE: CASE EVENT DATE: 20230804
